FAERS Safety Report 8314432-2 (Version None)
Quarter: 2012Q2

REPORT INFORMATION
  Report Type: 
  Country: None (occurrence: None)
  Receive Date: 20120426
  Receipt Date: 20120410
  Transmission Date: 20120825
  Serious: Yes (Other)
  Sender: FDA-Public Use
  Company Number: US-ROCHE-1058459

PATIENT
  Sex: Female

DRUGS (11)
  1. CELEBREX [Suspect]
     Indication: PAIN
  2. OPIATE DERIVATIVE [Suspect]
     Indication: PAIN
  3. NITROFURANTOIN [Suspect]
     Indication: INFECTION
  4. NAPROXEN (ALEVE) [Suspect]
     Indication: PAIN
  5. NAPROSYN [Suspect]
     Indication: PAIN
  6. GABAPENTIN [Suspect]
     Indication: PAIN
  7. LYRICA [Suspect]
     Indication: PAIN
     Route: 048
  8. HYDROCODONE [Suspect]
     Indication: PAIN
  9. VOLTAREN [Suspect]
     Indication: PAIN
  10. MOTRIN [Suspect]
     Indication: PAIN
  11. VALIUM [Concomitant]
     Indication: MUSCLE SPASMS

REACTIONS (14)
  - NEURITIS [None]
  - SPINAL DISORDER [None]
  - NONSPECIFIC REACTION [None]
  - APHTHOUS STOMATITIS [None]
  - THERAPY REGIMEN CHANGED [None]
  - UNEVALUABLE EVENT [None]
  - THOUGHT BLOCKING [None]
  - PARAESTHESIA [None]
  - PAIN [None]
  - PANIC ATTACK [None]
  - DRY MOUTH [None]
  - BURNING SENSATION [None]
  - MENTAL DISORDER [None]
  - GASTRIC DISORDER [None]
